FAERS Safety Report 9416051 (Version 1)
Quarter: 2013Q3

REPORT INFORMATION
  Report Type: Spontaneous
  Country: US (occurrence: None)
  Receive Date: 20130723
  Receipt Date: 20130723
  Transmission Date: 20140515
  Serious: Yes (Other)
  Sender: FDA-Public Use
  Company Number: None

PATIENT
  Age: 42 Year
  Sex: Female

DRUGS (13)
  1. CEPHALEXIN [Suspect]
     Indication: PNEUMONIA
     Dosage: 500MG, 5, DAILY, BY MOUTH
     Route: 048
     Dates: start: 20130720, end: 20130720
  2. ABILIFY [Concomitant]
  3. ASPIRIN [Concomitant]
  4. ZYRTEC [Concomitant]
  5. COLACE [Concomitant]
  6. LEXAPRO [Concomitant]
  7. FEOSOL [Concomitant]
  8. NIACIN [Concomitant]
  9. TRILEPTAL [Concomitant]
  10. ZOCOR [Concomitant]
  11. DIAZEPAM [Concomitant]
  12. OS-CAL [Concomitant]
  13. PROSTAT-THERA-M [Concomitant]

REACTIONS (2)
  - Drug dispensing error [None]
  - Drug dispensing error [None]
